FAERS Safety Report 5001970-3 (Version None)
Quarter: 2006Q2

REPORT INFORMATION
  Report Type: 
  Country: None (occurrence: None)
  Receive Date: 20060515
  Receipt Date: 20060503
  Transmission Date: 20061013
  Serious: Yes (Hospitalization, Disabling)
  Sender: FDA-Public Use
  Company Number: CA-MERCK-0605USA00824

PATIENT
  Age: 67 Year
  Sex: Female
  Weight: 86 kg

DRUGS (13)
  1. VIOXX [Suspect]
     Indication: ARTHRITIS
     Route: 048
     Dates: start: 20010101, end: 20030101
  2. LAMISIL [Concomitant]
     Route: 065
  3. DIFLUCAN [Concomitant]
     Route: 065
  4. PREMARIN [Concomitant]
     Route: 065
  5. PANTOPRAZOLE SODIUM [Concomitant]
     Route: 065
  6. DICETEL [Concomitant]
     Route: 065
  7. DEPO-MEDROL [Concomitant]
     Route: 065
  8. ELOCOM [Concomitant]
     Route: 065
  9. CLOTRIMAZOLE [Concomitant]
     Route: 065
  10. BECLOMETHASONE DIPROPIONATE [Concomitant]
     Route: 065
  11. FLUCONAZOLE [Concomitant]
     Route: 065
  12. TYLENOL W/ CODEINE NO. 3 [Suspect]
     Route: 065
  13. GLUCOSAMINE [Concomitant]
     Route: 065
     Dates: start: 20000101

REACTIONS (4)
  - BLOOD CHOLESTEROL INCREASED [None]
  - DRUG HYPERSENSITIVITY [None]
  - HYPERTENSION [None]
  - MYOCARDIAL INFARCTION [None]
